FAERS Safety Report 9437994 (Version 1)
Quarter: 2013Q3

REPORT INFORMATION
  Report Type: Spontaneous
  Country: US (occurrence: US)
  Receive Date: 20130802
  Receipt Date: 20130802
  Transmission Date: 20140515
  Serious: Yes (Other)
  Sender: FDA-Public Use
  Company Number: US-BRISTOL-MYERS SQUIBB COMPANY-18926196

PATIENT
  Sex: 0

DRUGS (2)
  1. COUMADIN [Suspect]
  2. XARELTO [Suspect]
     Dosage: 1 DF-FILM COATED TABLET
     Route: 048

REACTIONS (1)
  - Haematuria [Unknown]
